FAERS Safety Report 9531965 (Version 2)
Quarter: 2013Q3

REPORT INFORMATION
  Report Type: Spontaneous
  Country: JP (occurrence: JP)
  Receive Date: 20130918
  Receipt Date: 20130918
  Transmission Date: 20140515
  Serious: Yes (Hospitalization)
  Sender: FDA-Public Use
  Company Number: JP-TAKEDA-TCI2013A03251

PATIENT
  Age: 37 Year
  Sex: Male
  Weight: 81 kg

DRUGS (12)
  1. NESINA TABLETS 25MG [Suspect]
     Indication: HYPERGLYCAEMIA
     Dosage: 25 MG, QD
     Route: 048
     Dates: start: 20120215, end: 20130514
  2. NESINA TABLETS 25MG [Suspect]
     Indication: HYPERGLYCAEMIA
     Dosage: 25 MG, QD
     Route: 048
     Dates: start: 20130531, end: 20130601
  3. BAYASPIRIN [Concomitant]
     Route: 048
     Dates: start: 201202
  4. SIGMART [Concomitant]
     Route: 048
     Dates: start: 201202
  5. MICARDIS [Concomitant]
     Route: 048
     Dates: start: 201202
  6. MAINTATE [Concomitant]
     Route: 048
     Dates: start: 201202
  7. NIVADIL [Concomitant]
     Route: 048
     Dates: start: 201202
  8. SELARA [Concomitant]
     Route: 048
     Dates: start: 201202
  9. LIVALO [Concomitant]
     Route: 048
     Dates: start: 201202
  10. GASTER D [Concomitant]
     Route: 048
     Dates: start: 201202, end: 20130602
  11. METGLUCO [Concomitant]
     Route: 048
     Dates: start: 201205, end: 201208
  12. AMARYL [Concomitant]
     Route: 048
     Dates: start: 20121102

REACTIONS (1)
  - Colitis ulcerative [Recovering/Resolving]
